FAERS Safety Report 14342077 (Version 3)
Quarter: 2018Q1

REPORT INFORMATION
  Report Type: Report from Study
  Country: JP (occurrence: JP)
  Receive Date: 20180102
  Receipt Date: 20180312
  Transmission Date: 20180509
  Serious: Yes (Hospitalization, Disabling)
  Sender: FDA-Public Use
  Company Number: JP-B.I. PHARMACEUTICALS,INC./RIDGEFIELD-2018-NB-000003

PATIENT
  Age: 71 Year
  Sex: Male
  Weight: 64.4 kg

DRUGS (5)
  1. EMPAGLIFLOZIN [Suspect]
     Active Substance: EMPAGLIFLOZIN
     Indication: TYPE 2 DIABETES MELLITUS
     Route: 048
     Dates: start: 20161013
  2. SHAKUYAKUKANZOTO [Concomitant]
     Active Substance: HERBALS
     Indication: PRODUCT USED FOR UNKNOWN INDICATION
     Route: 048
  3. DIOVAN OD [Concomitant]
     Indication: PRODUCT USED FOR UNKNOWN INDICATION
     Route: 048
  4. AMARYL [Concomitant]
     Active Substance: GLIMEPIRIDE
     Indication: TYPE 2 DIABETES MELLITUS
     Route: 048
  5. EQUMET [Concomitant]
     Active Substance: METFORMIN HYDROCHLORIDE\VILDAGLIPTIN
     Indication: TYPE 2 DIABETES MELLITUS
     Route: 048

REACTIONS (3)
  - Thrombotic cerebral infarction [Recovered/Resolved with Sequelae]
  - Carotid artery stenosis [Recovered/Resolved with Sequelae]
  - Malignant neoplasm progression [Recovered/Resolved]

NARRATIVE: CASE EVENT DATE: 20170815
